FAERS Safety Report 7151038-5 (Version None)
Quarter: 2010Q4

REPORT INFORMATION
  Report Type: 
  Country: None (occurrence: None)
  Receive Date: 20101210
  Receipt Date: 20101203
  Transmission Date: 20110411
  Serious: Yes (Other)
  Sender: FDA-Public Use
  Company Number: B0687906A

PATIENT
  Sex: Female

DRUGS (5)
  1. DEROXAT [Suspect]
     Indication: PRODUCT USED FOR UNKNOWN INDICATION
     Dosage: 40MG PER DAY
     Route: 048
     Dates: start: 20100408
  2. VALACYCLOVIR HYDROCHLORIDE [Suspect]
     Indication: HERPES ZOSTER OPHTHALMIC
     Route: 048
  3. LYRICA [Suspect]
     Indication: HERPES ZOSTER
     Dosage: 200MG PER DAY
     Route: 065
  4. STALEVO 100 [Concomitant]
     Dosage: 200MG THREE TIMES PER DAY
     Route: 048
     Dates: start: 20100422
  5. ARICEPT [Concomitant]
     Dosage: 10MG PER DAY
     Route: 048
     Dates: start: 20100101

REACTIONS (3)
  - BLOOD AMYLASE INCREASED [None]
  - DRUG INEFFECTIVE [None]
  - LIPASE INCREASED [None]
